FAERS Safety Report 16388122 (Version 2)
Quarter: 2020Q1

REPORT INFORMATION
  Report Type: Report from Study
  Country: JP (occurrence: JP)
  Receive Date: 20190604
  Receipt Date: 20200207
  Transmission Date: 20200409
  Serious: Yes (Hospitalization)
  Sender: FDA-Public Use
  Company Number: JP-ACTELION-A-CH2019-190924

PATIENT
  Age: 86 Year
  Sex: Female

DRUGS (14)
  1. FERROMIA [Concomitant]
     Active Substance: SODIUM FERROUS CITRATE
  2. MAGMITT [Concomitant]
     Active Substance: MAGNESIUM OXIDE
  3. SAMSCA [Concomitant]
     Active Substance: TOLVAPTAN
  4. ALFAROL [Concomitant]
     Active Substance: ALFACALCIDOL
  5. ETIZOLAM [Concomitant]
     Active Substance: ETIZOLAM
  6. PREDNISOLONE. [Concomitant]
     Active Substance: PREDNISOLONE
  7. OPSUMIT [Suspect]
     Active Substance: MACITENTAN
     Indication: PULMONARY HYPERTENSION
     Dosage: 10 MG, QD
     Route: 048
     Dates: start: 20180914
  8. TIZANIDINE. [Concomitant]
     Active Substance: TIZANIDINE
  9. LIXIANA [Concomitant]
     Active Substance: EDOXABAN TOSYLATE
  10. TAKECAB [Concomitant]
     Active Substance: VONOPRAZAN FUMURATE
  11. LIPIDIL [Concomitant]
     Active Substance: FENOFIBRATE
  12. FEBURIC [Concomitant]
     Active Substance: FEBUXOSTAT
  13. FUROSEMIDE. [Concomitant]
     Active Substance: FUROSEMIDE
  14. OXYGEN. [Concomitant]
     Active Substance: OXYGEN

REACTIONS (4)
  - Pneumonia [Recovered/Resolved]
  - Respiratory disorder [Recovered/Resolved]
  - Oxygen saturation decreased [Recovered/Resolved]
  - Pyrexia [Recovered/Resolved]

NARRATIVE: CASE EVENT DATE: 20181010
